FAERS Safety Report 5014289-1 (Version None)
Quarter: 2006Q2

REPORT INFORMATION
  Report Type: 
  Country: None (occurrence: None)
  Receive Date: 20060414
  Receipt Date: 20060105
  Transmission Date: 20061013
  Serious: No
  Sender: FDA-Public Use
  Company Number: 2005SP004384

PATIENT
  Age: 51 Year
  Sex: Female
  Weight: 90.7194 kg

DRUGS (5)
  1. LUNESTA [Suspect]
     Indication: INSOMNIA
     Dosage: 2 MG; PRN; ORAL;   2 MG; HS; ORAL
     Route: 048
     Dates: start: 20050801, end: 20050101
  2. LUNESTA [Suspect]
     Indication: INSOMNIA
     Dosage: 2 MG; PRN; ORAL;   2 MG; HS; ORAL
     Route: 048
     Dates: start: 20050908, end: 20050101
  3. HYDROCHLOROTHIAZIDE [Concomitant]
  4. PAXIL [Concomitant]
  5. ASPIRIN [Concomitant]

REACTIONS (3)
  - DRY MOUTH [None]
  - DYSGEUSIA [None]
  - MUCOSAL DISCOLOURATION [None]
